FAERS Safety Report 5244400-9 (Version None)
Quarter: 2007Q1

REPORT INFORMATION
  Report Type: 
  Country: None (occurrence: None)
  Receive Date: 20070222
  Receipt Date: 20070214
  Transmission Date: 20070707
  Serious: Yes (Other)
  Sender: FDA-Public Use
  Company Number: 2007SE00866

PATIENT
  Age: 956 Month
  Sex: Female
  Weight: 72 kg

DRUGS (4)
  1. COKENZEN 16/12.5 [Suspect]
     Indication: HYPERTENSION
     Dosage: 16 + 12.5 MG ONCE DAILY
     Route: 048
     Dates: start: 20040101
  2. FOSAMAX [Suspect]
     Indication: OSTEOPOROSIS
     Route: 048
     Dates: start: 20050101, end: 20061116
  3. DESLORATADINE [Concomitant]
     Indication: RHINITIS ALLERGIC
     Route: 048
     Dates: start: 20030101
  4. ZANIDIP [Concomitant]
     Indication: HYPERTENSION
     Route: 048
     Dates: start: 20040101

REACTIONS (3)
  - ANAEMIA [None]
  - PLATELET COUNT INCREASED [None]
  - SERUM FERRITIN DECREASED [None]
